FAERS Safety Report 6337625-2 (Version None)
Quarter: 2009Q3

REPORT INFORMATION
  Report Type: 
  Country: None (occurrence: None)
  Receive Date: 20090902
  Receipt Date: 20090821
  Transmission Date: 20100115
  Serious: Yes (Death)
  Sender: FDA-Public Use
  Company Number: US-ELI_LILLY_AND_COMPANY-US200908003278

PATIENT
  Sex: Female

DRUGS (2)
  1. ZYPREXA [Suspect]
     Indication: DEMENTIA
     Dates: start: 20000101
  2. APPETITE STIMULANTS [Concomitant]

REACTIONS (4)
  - DEMENTIA [None]
  - EATING DISORDER [None]
  - OFF LABEL USE [None]
  - TREMOR [None]
